FAERS Safety Report 15904786 (Version 1)
Quarter: 2019Q1

REPORT INFORMATION
  Report Type: Report from Study
  Country: US (occurrence: US)
  Receive Date: 20190204
  Receipt Date: 20190204
  Transmission Date: 20190417
  Serious: Yes (Other)
  Sender: FDA-Public Use
  Company Number: US-ROCHE-2253494

PATIENT

DRUGS (4)
  1. MYCOPHENOLATE MOFETIL. [Suspect]
     Active Substance: MYCOPHENOLATE MOFETIL
     Indication: LUPUS NEPHRITIS
     Dosage: PATIENTS WHO WERE TAKING MMF UPON ENTERING THE STUDY CONTINUED TO TAKE THE PREEXISTING DOSE. ALL OTH
     Route: 065
  2. METHYLPREDNISOLONE. [Suspect]
     Active Substance: METHYLPREDNISOLONE
     Indication: LUPUS NEPHRITIS
     Dosage: ON DAY 0 AND 1
     Route: 042
  3. PREDNISONE. [Suspect]
     Active Substance: PREDNISONE
     Indication: LUPUS NEPHRITIS
     Dosage: STARTED ON DAY 2, 20 MG/D FOR SUBJECTS WEIGHING {45 KG AND 25 MG/D FOR SUBJECTS WEIGHING MORE THAN O
     Route: 048
  4. VOCLOSPORIN [Suspect]
     Active Substance: VOCLOSPORIN
     Indication: LUPUS NEPHRITIS
     Dosage: LOW DOSE VCS (23.7 MG TWICE DAILY) OR HIGH-DOSE VCS (39.5 MG TWICE DAILY)
     Route: 065

REACTIONS (21)
  - Pneumonia [Unknown]
  - Gastroenteritis [Unknown]
  - Acute kidney injury [Unknown]
  - Urinary tract infection [Unknown]
  - Urinary tract disorder [Unknown]
  - Gastrointestinal disorder [Unknown]
  - Blood disorder [Unknown]
  - Cardiac disorder [Unknown]
  - Connective tissue disorder [Unknown]
  - Posterior reversible encephalopathy syndrome [Unknown]
  - Pulmonary embolism [Unknown]
  - Lymphatic disorder [Unknown]
  - Infection [Unknown]
  - Sepsis [Unknown]
  - Acute respiratory distress syndrome [Unknown]
  - Systemic lupus erythematosus [Unknown]
  - Nervous system disorder [Unknown]
  - Hypertension [Unknown]
  - Musculoskeletal disorder [Unknown]
  - Respiratory disorder [Unknown]
  - Neoplasm malignant [Unknown]
